FAERS Safety Report 7551884-X (Version None)
Quarter: 2011Q2

REPORT INFORMATION
  Report Type: 
  Country: None (occurrence: None)
  Receive Date: 20110616
  Receipt Date: 20110601
  Transmission Date: 20111010
  Serious: Yes (Other)
  Sender: FDA-Public Use
  Company Number: GB-JNJFOC-20101103772

PATIENT
  Sex: Male
  Weight: 85 kg

DRUGS (2)
  1. METHOTREXATE [Concomitant]
     Dates: start: 20011001
  2. REMICADE [Suspect]
     Indication: RHEUMATOID ARTHRITIS
     Route: 042
     Dates: start: 20011001

REACTIONS (1)
  - ADULT T-CELL LYMPHOMA/LEUKAEMIA [None]
